FAERS Safety Report 18659394 (Version 1)
Quarter: 2020Q4

REPORT INFORMATION
  Report Type: Spontaneous
  Country: NL (occurrence: NL)
  Receive Date: 20201223
  Receipt Date: 20201223
  Transmission Date: 20210114
  Serious: Yes (Congenital Anomaly)
  Sender: FDA-Public Use
  Company Number: NL-MYLANLABS-2020M1103254

PATIENT
  Sex: Male
  Weight: 7.5 kg

DRUGS (3)
  1. TEMAZEPAM. [Suspect]
     Active Substance: TEMAZEPAM
     Indication: SLEEP DISORDER
     Dosage: FOR THE NIGHT 1 CAPSUKE IF NECESSARY
     Route: 064
  2. CYTOTEC [Concomitant]
     Active Substance: MISOPROSTOL
     Dosage: LOW DOSAGE FOR PRIMING
  3. PARACETAMOL [Concomitant]
     Active Substance: ACETAMINOPHEN
     Dosage: 500 MILLIGRAM

REACTIONS (2)
  - Foetal exposure during pregnancy [Recovered/Resolved]
  - Congenital tracheomalacia [Unknown]

NARRATIVE: CASE EVENT DATE: 20200313
